FAERS Safety Report 6058267-2 (Version None)
Quarter: 2009Q1

REPORT INFORMATION
  Report Type: 
  Country: None (occurrence: None)
  Receive Date: 20090130
  Receipt Date: 20090119
  Transmission Date: 20090719
  Serious: Yes (Hospitalization)
  Sender: FDA-Public Use
  Company Number: FR-CELGENEUS-056-20785-09011013

PATIENT
  Sex: Female
  Weight: 48.5 kg

DRUGS (8)
  1. THALIDOMIDE [Suspect]
     Indication: MULTIPLE MYELOMA
     Route: 048
     Dates: start: 20081015
  2. VELCADE [Suspect]
     Indication: MULTIPLE MYELOMA
     Route: 051
     Dates: start: 20081015, end: 20081129
  3. DEXAMETHASONE [Suspect]
     Indication: MULTIPLE MYELOMA
     Route: 048
     Dates: start: 20081015, end: 20081129
  4. ALDACTONE [Concomitant]
     Route: 048
     Dates: start: 20080930
  5. DETENSIEL [Concomitant]
     Route: 048
     Dates: start: 20080930
  6. INIPOMP [Concomitant]
     Route: 048
     Dates: start: 20080930
  7. SKENAN [Concomitant]
     Indication: BONE PAIN
     Route: 048
     Dates: start: 20081115
  8. ZOPHREN [Concomitant]
     Indication: VOMITING
     Route: 048
     Dates: start: 20081117

REACTIONS (3)
  - GENERAL PHYSICAL HEALTH DETERIORATION [None]
  - NAUSEA [None]
  - VOMITING [None]
